FAERS Safety Report 13258509 (Version 2)
Quarter: 2017Q2

REPORT INFORMATION
  Report Type: Report from Study
  Country: JP (occurrence: JP)
  Receive Date: 20170222
  Receipt Date: 20170605
  Transmission Date: 20170830
  Serious: Yes (Other)
  Sender: FDA-Public Use
  Company Number: JP-AMGEN-JPNCT2015117658

PATIENT
  Age: 75 Year
  Sex: Female
  Weight: 47.7 kg

DRUGS (12)
  1. OXALIPLATIN. [Concomitant]
     Active Substance: OXALIPLATIN
     Dosage: 110 MG, Q2WEEKS
     Route: 041
     Dates: start: 20160113, end: 20160127
  2. CALCIUM LEVOFOLINATE [Concomitant]
     Active Substance: LEVOLEUCOVORIN CALCIUM
     Indication: COLON CANCER
     Dosage: UNK UNK, Q2WEEKS
     Route: 041
     Dates: start: 20151028, end: 20151202
  3. OXALIPLATIN. [Concomitant]
     Active Substance: OXALIPLATIN
     Indication: COLON CANCER
     Dosage: 110 MG, Q2WEEKS
     Route: 041
     Dates: start: 20151021, end: 20151202
  4. 5-FU [Concomitant]
     Active Substance: FLUOROURACIL
     Indication: COLON CANCER
     Dosage: 400 MG/M2, Q2WEEKS
     Route: 040
     Dates: start: 20151021, end: 20151202
  5. CALCIUM LEVOFOLINATE [Concomitant]
     Active Substance: LEVOLEUCOVORIN CALCIUM
     Dosage: UNK UNK, Q2WEEKS
     Route: 041
     Dates: start: 20160113, end: 20160127
  6. 5-FU [Concomitant]
     Active Substance: FLUOROURACIL
     Dosage: 2357.1 MG/M2, Q2WEEKS
     Route: 041
     Dates: start: 20160113, end: 20160127
  7. PANITUMUMAB [Suspect]
     Active Substance: PANITUMUMAB
     Indication: COLON CANCER
     Dosage: 6 MG/KG, Q2WK
     Route: 041
     Dates: start: 20151021, end: 20151021
  8. PANITUMUMAB [Suspect]
     Active Substance: PANITUMUMAB
     Dosage: 6 MG/KG, Q2WK
     Route: 041
     Dates: start: 20160113
  9. 5-FU [Concomitant]
     Active Substance: FLUOROURACIL
     Dosage: UNK UNK, Q2WEEKS
     Route: 041
     Dates: start: 20151021, end: 20151021
  10. 5-FU [Concomitant]
     Active Substance: FLUOROURACIL
     Dosage: 2357.1 MG/M2, Q2WEEKS
     Route: 041
     Dates: start: 20151028, end: 20151202
  11. 5-FU [Concomitant]
     Active Substance: FLUOROURACIL
     Dosage: 400 MG/M2, Q2WK
     Route: 040
     Dates: start: 20160113, end: 20160127
  12. PANITUMUMAB [Suspect]
     Active Substance: PANITUMUMAB
     Dosage: 6 MG/KG, Q2WK
     Route: 041
     Dates: start: 20151111, end: 20151202

REACTIONS (13)
  - Infusion related reaction [Unknown]
  - Vomiting [Recovered/Resolved]
  - Haemoglobin decreased [Recovered/Resolved]
  - Wheezing [Recovered/Resolved]
  - Blood alkaline phosphatase increased [Recovered/Resolved]
  - Decreased appetite [Unknown]
  - Erythema [Recovered/Resolved]
  - Weight decreased [Recovered/Resolved]
  - Hypoxia [Recovered/Resolved]
  - Amylase increased [Unknown]
  - Platelet count decreased [Unknown]
  - Alanine aminotransferase increased [Recovered/Resolved]
  - Stomatitis [Recovered/Resolved]

NARRATIVE: CASE EVENT DATE: 20151021
